FAERS Safety Report 4334457-1 (Version None)
Quarter: 2004Q2

REPORT INFORMATION
  Report Type: 
  Country: None (occurrence: None)
  Receive Date: 20040407
  Receipt Date: 20020516
  Transmission Date: 20050107
  Serious: Yes (Other)
  Sender: FDA-Public Use
  Company Number: US-MERCK-0205USA02053

PATIENT
  Age: 37 Year
  Sex: Male

DRUGS (1)
  1. VIOXX [Suspect]
     Indication: NECK PAIN
     Route: 048
     Dates: start: 20010606, end: 20010608

REACTIONS (23)
  - ACUTE SINUSITIS [None]
  - BLOOD PRESSURE INCREASED [None]
  - BRONCHITIS [None]
  - CERVICAL SPINE FLATTENING [None]
  - CHEST PAIN [None]
  - DIZZINESS [None]
  - DYSPNOEA [None]
  - EPIDIDYMITIS [None]
  - FOOT FRACTURE [None]
  - FOREIGN BODY TRAUMA [None]
  - HEAD INJURY [None]
  - HEART RATE INCREASED [None]
  - HYPERSENSITIVITY [None]
  - INJURY [None]
  - INTERVERTEBRAL DISC PROTRUSION [None]
  - MUSCLE SPASMS [None]
  - MYOCARDIAL INFARCTION [None]
  - OCCUPATIONAL EXPOSURE TO TOXIC AGENT [None]
  - RADICULOPATHY [None]
  - RASH [None]
  - SPINAL CORD COMPRESSION [None]
  - TINEA CRURIS [None]
  - VIRAL RASH [None]
